FAERS Safety Report 9719824 (Version 2)
Quarter: 2013Q4

REPORT INFORMATION
  Report Type: Spontaneous
  Country: US (occurrence: US)
  Receive Date: 20131128
  Receipt Date: 20131227
  Transmission Date: 20140711
  Serious: No
  Sender: FDA-Public Use
  Company Number: US-JNJFOC-20131108959

PATIENT
  Sex: Female

DRUGS (7)
  1. DURAGESIC [Suspect]
     Indication: PAIN
     Dosage: 25 UG/HR +12.5 UG/HR
     Route: 062
     Dates: end: 2013
  2. DURAGESIC [Suspect]
     Indication: PAIN
     Route: 062
     Dates: start: 20131018
  3. PERCOCET [Concomitant]
     Indication: BREAKTHROUGH PAIN
     Dosage: 10-325MG TABLET EVERY 4-6 HOURS AS NEEDED
     Route: 048
  4. CLONAZEPAM [Concomitant]
     Indication: ANXIETY
     Dosage: 0.5MG/ 1 IN AM AS NEEDED
     Route: 048
  5. CLONAZEPAM [Concomitant]
     Indication: ANXIETY
     Dosage: 0.5MG/2IN PM AS NEEDED
     Route: 048
  6. FUROSEMIDE [Concomitant]
     Indication: SWELLING
     Dosage: TWO TIMES A DAY AS NEEDED.
     Route: 048
  7. GABAPENTIN [Concomitant]
     Indication: PAIN
     Route: 048

REACTIONS (5)
  - Wrong technique in drug usage process [Unknown]
  - Product quality issue [Recovered/Resolved]
  - Drug ineffective [Unknown]
  - Product quality issue [Recovered/Resolved]
  - Application site pruritus [Unknown]
